FAERS Safety Report 17665285 (Version 1)
Quarter: 2020Q2

REPORT INFORMATION
  Report Type: Spontaneous
  Country: US (occurrence: US)
  Receive Date: 20200411
  Receipt Date: 20200411
  Transmission Date: 20200713
  Serious: No
  Sender: FDA-Public Use
  Company Number: None

PATIENT
  Age: 44 Year
  Sex: Male
  Weight: 85.5 kg

DRUGS (1)
  1. XXXPLOSION [DIETARY SUPPLEMENT] [Suspect]
     Active Substance: DIETARY SUPPLEMENT
     Indication: ERECTILE DYSFUNCTION
     Dosage: ?          OTHER STRENGTH:N/A;QUANTITY:1 TABLET(S);?
     Route: 048
     Dates: start: 20180802, end: 20200410

REACTIONS (3)
  - Nonspecific reaction [None]
  - Hypertension [None]
  - Migraine [None]

NARRATIVE: CASE EVENT DATE: 20200312
